FAERS Safety Report 13424782 (Version 4)
Quarter: 2017Q2

REPORT INFORMATION
  Report Type: Spontaneous
  Country: US (occurrence: US)
  Receive Date: 20170410
  Receipt Date: 20170531
  Transmission Date: 20170830
  Serious: Yes (Hospitalization)
  Sender: FDA-Public Use
  Company Number: US-ACTELION-A-US2017-152072

PATIENT
  Age: 85 Year
  Sex: Female

DRUGS (18)
  1. ESTRACE [Concomitant]
     Active Substance: ESTRADIOL
  2. OPSUMIT [Suspect]
     Active Substance: MACITENTAN
     Indication: PULMONARY ARTERIAL HYPERTENSION
     Dosage: 10 MG, QD
     Route: 048
     Dates: start: 20151007
  3. FLUTICASONE. [Concomitant]
     Active Substance: FLUTICASONE
  4. CYCLOBENZAPRINE. [Concomitant]
     Active Substance: CYCLOBENZAPRINE
  5. POTASSIUM [Concomitant]
     Active Substance: POTASSIUM
  6. LATANOPROST. [Concomitant]
     Active Substance: LATANOPROST
  7. FUROSEMIDE. [Concomitant]
     Active Substance: FUROSEMIDE
  8. PRINIVIL [Concomitant]
     Active Substance: LISINOPRIL
  9. OMEPRAZOLE. [Concomitant]
     Active Substance: OMEPRAZOLE
  10. HYOSCYAMINE. [Concomitant]
     Active Substance: HYOSCYAMINE
  11. ASPIRIN. [Concomitant]
     Active Substance: ASPIRIN
  12. HYDROCHLOROTHIAZIDE. [Concomitant]
     Active Substance: HYDROCHLOROTHIAZIDE
  13. ADCIRCA [Concomitant]
     Active Substance: TADALAFIL
  14. DOXYCYCLINE. [Concomitant]
     Active Substance: DOXYCYCLINE
  15. CLONIDINE. [Concomitant]
     Active Substance: CLONIDINE
  16. SIMVASTATIN. [Concomitant]
     Active Substance: SIMVASTATIN
  17. ZOLOFT [Concomitant]
     Active Substance: SERTRALINE HYDROCHLORIDE
  18. SYNTHROID [Concomitant]
     Active Substance: LEVOTHYROXINE SODIUM

REACTIONS (8)
  - Pneumonia [Not Recovered/Not Resolved]
  - Dizziness [Recovering/Resolving]
  - Atrial fibrillation [Unknown]
  - Heart rate increased [Recovered/Resolved]
  - Fatigue [Recovering/Resolving]
  - Heart rate decreased [Recovering/Resolving]
  - Cardiac pacemaker insertion [Recovering/Resolving]
  - Palpitations [Recovered/Resolved]

NARRATIVE: CASE EVENT DATE: 20170402
